FAERS Safety Report 14392688 (Version 1)
Quarter: 2018Q1

REPORT INFORMATION
  Report Type: Other
  Country: FR (occurrence: FR)
  Receive Date: 20180116
  Receipt Date: 20180116
  Transmission Date: 20180509
  Serious: Yes (Life-Threatening)
  Sender: FDA-Public Use
  Company Number: FR-HQ SPECIALTY-FR-2018INT000006

PATIENT
  Age: 89 Year
  Sex: Male
  Weight: 98 kg

DRUGS (9)
  1. CEFEPIME [Suspect]
     Active Substance: CEFEPIME HYDROCHLORIDE
     Indication: PERITONITIS
     Dosage: 1 G,12 H
     Route: 041
     Dates: start: 20171118, end: 20171121
  2. PANTOPRAZOLE [Concomitant]
     Active Substance: PANTOPRAZOLE
     Indication: PRODUCT USED FOR UNKNOWN INDICATION
     Dosage: UNK
     Route: 065
  3. HYDROCORTISONE. [Concomitant]
     Active Substance: HYDROCORTISONE
     Indication: PRODUCT USED FOR UNKNOWN INDICATION
     Dosage: UNK
     Route: 065
  4. DEXMEDETOMIDINE HYDROCHLORIDE. [Suspect]
     Active Substance: DEXMEDETOMIDINE HYDROCHLORIDE
     Indication: SEDATION
     Dosage: 100 MCG/ML (0.2 UG/KG,1 H)
     Route: 041
     Dates: start: 20171118, end: 20171121
  5. TOPALGIC                           /00599202/ [Suspect]
     Active Substance: TRAMADOL HYDROCHLORIDE
     Indication: PAIN
     Dosage: 100 MG/2 ML (100 MG, 6 H)
     Route: 042
     Dates: start: 20171115, end: 20171121
  6. POTASSIUM RICHARD [Concomitant]
     Active Substance: POTASSIUM CHLORIDE\POTASSIUM GLYCEROPHOSPHATE ANHYDROUS
     Indication: PRODUCT USED FOR UNKNOWN INDICATION
     Dosage: UNK
     Route: 065
  7. METRONIDAZOLE. [Suspect]
     Active Substance: METRONIDAZOLE
     Indication: PERITONITIS
     Dosage: 500 MG, 8 H
     Route: 042
     Dates: start: 20171115, end: 20171121
  8. DIAMOX                             /00016901/ [Suspect]
     Active Substance: ACETAZOLAMIDE
     Indication: METABOLIC ALKALOSIS
     Dosage: 500 MG,12 H
     Route: 015
     Dates: start: 20171119, end: 20171121
  9. EUPRESSYL                          /00631801/ [Suspect]
     Active Substance: URAPIDIL
     Indication: HYPERTENSION
     Dosage: 50 MG (6.9 MG,1 H)
     Route: 041
     Dates: start: 20171116, end: 20171121

REACTIONS (2)
  - Encephalopathy [Recovered/Resolved]
  - Myoclonus [Recovered/Resolved]

NARRATIVE: CASE EVENT DATE: 20171122
